FAERS Safety Report 8574610-4 (Version None)
Quarter: 2012Q3

REPORT INFORMATION
  Report Type: 
  Country: None (occurrence: None)
  Receive Date: 20120807
  Receipt Date: 20120724
  Transmission Date: 20120928
  Serious: Yes (Hospitalization, Other)
  Sender: FDA-Public Use
  Company Number: FR-AMGEN-FRASP2012038191

PATIENT
  Age: 41 Year
  Sex: Female

DRUGS (5)
  1. NEXIUM [Concomitant]
     Indication: PROPHYLAXIS
     Dosage: 40 MG, 1X/DAY
     Route: 048
     Dates: start: 20101101
  2. LEFLUNOMIDE [Concomitant]
     Indication: PSORIATIC ARTHROPATHY
     Dosage: 20 MG, 1X/DAY
     Route: 048
     Dates: start: 20100501
  3. MOBIC [Concomitant]
     Indication: PSORIATIC ARTHROPATHY
     Dosage: 15 MG, 1X/DAY
     Route: 048
     Dates: start: 20100301
  4. DOMPERIDONE [Concomitant]
     Indication: GASTROOESOPHAGEAL REFLUX DISEASE
     Dosage: 1 DF, 3X/DAY
     Route: 048
     Dates: start: 20101101
  5. ENBREL [Suspect]
     Indication: PSORIATIC ARTHROPATHY
     Dosage: 50 MG, UNK
     Dates: start: 20101101, end: 20120501

REACTIONS (1)
  - CUTANEOUS SARCOIDOSIS [None]
